FAERS Safety Report 13508178 (Version 2)
Quarter: 2017Q2

REPORT INFORMATION
  Report Type: Spontaneous
  Country: FR (occurrence: FR)
  Receive Date: 20170503
  Receipt Date: 20170516
  Transmission Date: 20170830
  Serious: Yes (Disabling)
  Sender: FDA-Public Use
  Company Number: FR-ROCHE-1926996

PATIENT
  Age: 62 Year
  Sex: Female
  Weight: 40 kg

DRUGS (6)
  1. EPIRUBICIN [Concomitant]
     Active Substance: EPIRUBICIN
  2. CYCLOPHOSPHAMIDE. [Concomitant]
     Active Substance: CYCLOPHOSPHAMIDE
  3. HERCEPTIN [Suspect]
     Active Substance: TRASTUZUMAB
     Indication: BREAST CANCER
     Dosage: 3 CYCLE
     Route: 042
     Dates: start: 20170120
  4. FLUOROURACIL. [Concomitant]
     Active Substance: FLUOROURACIL
  5. TAXOL [Suspect]
     Active Substance: PACLITAXEL
     Indication: BREAST CANCER
     Dosage: 3 CYCLE
     Route: 042
     Dates: start: 20170120, end: 20170414
  6. TAXOTERE [Concomitant]
     Active Substance: DOCETAXEL
     Route: 065

REACTIONS (1)
  - Hypoacusis [Not Recovered/Not Resolved]

NARRATIVE: CASE EVENT DATE: 201703
